FAERS Safety Report 5840697-2 (Version None)
Quarter: 2008Q3

REPORT INFORMATION
  Report Type: 
  Country: None (occurrence: None)
  Receive Date: 20080811
  Receipt Date: 20080805
  Transmission Date: 20090109
  Serious: Yes (Death, Other)
  Sender: FDA-Public Use
  Company Number: PHEH2007US15947

PATIENT
  Sex: Female

DRUGS (1)
  1. ZOMETA [Suspect]

REACTIONS (9)
  - BRAIN NEOPLASM [None]
  - BREAST CANCER [None]
  - DRUG TOXICITY [None]
  - FACIAL PAIN [None]
  - HYPOAESTHESIA FACIAL [None]
  - METASTASES TO BONE [None]
  - NERVE INJURY [None]
  - OSTEONECROSIS [None]
  - SPEECH DISORDER [None]
